FAERS Safety Report 9660956 (Version 1)
Quarter: 2013Q4

REPORT INFORMATION
  Report Type: Spontaneous
  Country: US (occurrence: US)
  Receive Date: 20131031
  Receipt Date: 20131031
  Transmission Date: 20140711
  Serious: Yes (Other)
  Sender: FDA-Public Use
  Company Number: US-PFIZER INC-2013311610

PATIENT
  Sex: Female

DRUGS (6)
  1. GABAPENTIN [Suspect]
     Dosage: UNK
  2. MORPHINE SULFATE [Suspect]
     Dosage: UNK
  3. EFFEXOR [Suspect]
     Dosage: UNK
  4. FLEXERIL [Suspect]
     Dosage: UNK
  5. LORTAB [Suspect]
     Dosage: HYDROCODONE BITARTRATE 10 MG/ ACETAMINOPHEN 500 MG, UNK
  6. ULTRAM [Suspect]
     Dosage: UNK

REACTIONS (2)
  - Spinal cord disorder [Unknown]
  - Bone swelling [Unknown]
